FAERS Safety Report 12696939 (Version 1)
Quarter: 2016Q3

REPORT INFORMATION
  Report Type: Spontaneous
  Country: BR (occurrence: BR)
  Receive Date: 20160830
  Receipt Date: 20160830
  Transmission Date: 20161109
  Serious: Yes (Other)
  Sender: FDA-Public Use
  Company Number: BR-AMGEN-BRASP2012008402

PATIENT
  Age: 55 Year
  Sex: Female
  Weight: 82 kg

DRUGS (17)
  1. OMEPRAZOLE. [Concomitant]
     Active Substance: OMEPRAZOLE
     Indication: GASTRITIS
     Dosage: 20 MG, 1X/DAY
     Dates: start: 2006
  2. FUROSEMIDE. [Concomitant]
     Active Substance: FUROSEMIDE
     Indication: PERIPHERAL SWELLING
     Dosage: UNK
  3. DAFLON [Concomitant]
     Active Substance: DIOSMIN\HESPERIDIN
     Indication: POOR PERIPHERAL CIRCULATION
     Dosage: 20 MG, 1X/DAY
     Dates: start: 201201
  4. GLIFAGE [Concomitant]
     Active Substance: METFORMIN HYDROCHLORIDE
     Indication: BLOOD GLUCOSE INCREASED
     Dosage: 2000 MG (2 TABLETS OF 1000MG), 1X/DAY
     Route: 048
     Dates: start: 201112
  5. FUROSEMIDE. [Concomitant]
     Active Substance: FUROSEMIDE
     Indication: JOINT SWELLING
     Dosage: 40 MG, AS NEEDED (WHEN FOOT OR KNEE WERE SWOLLEN)
  6. FUROSEMIDE. [Concomitant]
     Active Substance: FUROSEMIDE
     Indication: PERIPHERAL SWELLING
     Dosage: 40 MG, AS NEEDED (WHEN FOOT OR KNEE WERE SWOLLEN)
  7. BIOMAG [Concomitant]
     Indication: WEIGHT CONTROL
     Dosage: 10 MG, 1X/DAY
  8. DINAFLEX [Concomitant]
     Indication: OSTEOARTHRITIS
     Dosage: 1.5 MG, 1X/DAY
  9. DOMPERIDONE [Concomitant]
     Active Substance: DOMPERIDONE
     Indication: ABDOMINAL DISTENSION
     Dosage: 10 MG, UNK
  10. SIBUTRAMINE [Concomitant]
     Active Substance: SIBUTRAMINE
     Indication: WEIGHT CONTROL
     Dosage: UNK
  11. DICETEL [Concomitant]
     Active Substance: PINAVERIUM BROMIDE
     Dosage: 20 MG, 1X/DAY
     Route: 048
  12. GLUCOSAMINE SULFATE [Concomitant]
     Active Substance: GLUCOSAMINE SULFATE
     Indication: OSTEOARTHRITIS
     Dosage: 1.5 MG, 1X/DAY
  13. SOY ISOFLAVONES [Concomitant]
     Active Substance: SOY ISOFLAVONES
     Indication: HORMONE REPLACEMENT THERAPY
     Dosage: 80 MG, 1X/DAY
  14. ENBREL [Suspect]
     Active Substance: ETANERCEPT
     Indication: RHEUMATOID ARTHRITIS
     Dosage: 50 MG, ONCE WEEKLY
     Route: 058
     Dates: start: 2012
  15. BICONCOR [Concomitant]
     Active Substance: BISOPROLOL FUMARATE\HYDROCHLOROTHIAZIDE
     Indication: HYPERTENSION
     Dosage: 5 MG, 1X/DAY
     Dates: start: 2008
  16. OMEPRAZOLE. [Concomitant]
     Active Substance: OMEPRAZOLE
     Dosage: 20 MG, 1X/DAY
  17. DOMPERIDONE [Concomitant]
     Active Substance: DOMPERIDONE
     Dosage: 10 MG, UNK

REACTIONS (9)
  - Injection site induration [Unknown]
  - Dysphonia [Not Recovered/Not Resolved]
  - Tooth infection [Not Recovered/Not Resolved]
  - Injection site pustule [Unknown]
  - Injection site swelling [Unknown]
  - Tooth fracture [Not Recovered/Not Resolved]
  - Injection site erythema [Unknown]
  - Injection site pruritus [Unknown]
  - Influenza [Not Recovered/Not Resolved]
